FAERS Safety Report 10101670 (Version 1)
Quarter: 2014Q2

REPORT INFORMATION
  Report Type: Spontaneous
  Country: ES (occurrence: None)
  Receive Date: 20140422
  Receipt Date: 20140422
  Transmission Date: 20141212
  Serious: Yes (Hospitalization, Other)
  Sender: FDA-Public Use
  Company Number: KAD201401-000103

PATIENT
  Age: 47 Year
  Sex: Male

DRUGS (7)
  1. RIBAVIRIN (RIBAVIRIN) [Suspect]
     Indication: CHRONIC HEPATITIS C
     Route: 048
     Dates: start: 20130819
  2. BMS 914143 (PEGINTERFERON LAMBDA) [Suspect]
     Indication: CHRONIC HEPATITIS C
     Route: 058
     Dates: start: 20130819
  3. PEGINTERFERON ALFA-2A (PEGINTERFERON ALFA 2A) [Suspect]
     Route: 058
     Dates: start: 20130819
  4. TELAPREVIR (TELAPREVIR) [Suspect]
     Route: 048
     Dates: start: 20130819, end: 20131111
  5. MOMETASONE (MOMETASONE FURPATE [Concomitant]
  6. LORAZEPAM (LORAZEPAM) [Concomitant]
  7. HYDROXYZINE (HYDROYZINE) [Concomitant]

REACTIONS (2)
  - Drug-induced liver injury [None]
  - Drug-induced liver injury [None]
